FAERS Safety Report 6945746-6 (Version None)
Quarter: 2010Q3

REPORT INFORMATION
  Report Type: 
  Country: None (occurrence: None)
  Receive Date: 20100827
  Receipt Date: 20100825
  Transmission Date: 20110219
  Serious: Yes (Death, Hospitalization)
  Sender: FDA-Public Use
  Company Number: A0861744A

PATIENT
  Age: 72 Year
  Sex: Female
  Weight: 54.5 kg

DRUGS (1)
  1. AVANDIA [Suspect]
     Dosage: 2MG PER DAY
     Route: 048
     Dates: start: 20050101, end: 20080101

REACTIONS (8)
  - ANAEMIA [None]
  - ARTERIOVENOUS MALFORMATION [None]
  - CARDIAC FAILURE CONGESTIVE [None]
  - CARDIO-RESPIRATORY ARREST [None]
  - GASTROINTESTINAL HAEMORRHAGE [None]
  - HYPERTENSIVE NEPHROPATHY [None]
  - MYOCARDIAL INFARCTION [None]
  - RENAL FAILURE CHRONIC [None]
